FAERS Safety Report 14750870 (Version 1)
Quarter: 2018Q2

REPORT INFORMATION
  Report Type: Spontaneous
  Country: US (occurrence: US)
  Receive Date: 20180412
  Receipt Date: 20180412
  Transmission Date: 20180711
  Serious: No
  Sender: FDA-Public Use
  Company Number: US-TEVA-2018-US-878557

PATIENT
  Sex: Female

DRUGS (1)
  1. QNASL [Suspect]
     Active Substance: BECLOMETHASONE DIPROPIONATE
     Indication: HYPERSENSITIVITY
     Dosage: 2 SPRAYS IN EACH NOSTRIL ONCE A DAY
     Dates: start: 201803

REACTIONS (1)
  - Thermal burn [Not Recovered/Not Resolved]

NARRATIVE: CASE EVENT DATE: 201803
